FAERS Safety Report 9502113 (Version 1)
Quarter: 2013Q3

REPORT INFORMATION
  Report Type: Report from Study
  Country: CN (occurrence: CN)
  Receive Date: 20130905
  Receipt Date: 20130905
  Transmission Date: 20140515
  Serious: Yes (Other)
  Sender: FDA-Public Use
  Company Number: CN-US-EMD SERONO, INC.-7232629

PATIENT
  Sex: Male
  Weight: 18 kg

DRUGS (1)
  1. SAIZEN [Suspect]
     Indication: GROWTH HORMONE DEFICIENCY
     Dosage: SAIZEN DAILY INJECTION VOLUME 2.5
     Dates: start: 20090625

REACTIONS (1)
  - Pneumonia [Unknown]
